FAERS Safety Report 10244838 (Version 1)
Quarter: 2014Q2

REPORT INFORMATION
  Report Type: Spontaneous
  Country: US (occurrence: US)
  Receive Date: 20140618
  Receipt Date: 20140618
  Transmission Date: 20141212
  Serious: Yes (Other)
  Sender: FDA-Public Use
  Company Number: US-TARO-2014P1002115

PATIENT
  Age: 55 Year
  Sex: Female
  Weight: 131.09 kg

DRUGS (36)
  1. ACETAZOLAMIDE TABLETS 250 MG [Suspect]
     Indication: BENIGN INTRACRANIAL HYPERTENSION
     Route: 048
     Dates: start: 20140205, end: 20140305
  2. ALDACTONE [Concomitant]
     Dates: start: 1983
  3. CLONAZEPEM [Concomitant]
     Dates: start: 2007
  4. CYANOCOBALAMIN [Concomitant]
     Dates: start: 2013
  5. CYMBALTA [Concomitant]
     Dates: start: 2010
  6. GAMMA-NX [Concomitant]
     Dates: start: 2013
  7. HCTZ [Concomitant]
     Dates: start: 2006
  8. LISINOPRIL-HCTZ [Concomitant]
     Dates: start: 2001
  9. NABUMETONE (RELAFEN) [Concomitant]
     Dates: start: 1996
  10. NEURONTIN [Concomitant]
     Dates: start: 2005
  11. NEURONTIN [Concomitant]
     Dates: start: 2005
  12. PROTONIX [Concomitant]
     Dates: start: 2005
  13. SIMVASTATIN [Concomitant]
     Dates: start: 2008
  14. SYNTHROID [Concomitant]
     Dates: start: 1977
  15. TIZANIDINE HCL [Concomitant]
     Dates: start: 2010
  16. TIZANIDINE HCL [Concomitant]
     Dates: start: 2010
  17. TOPIRAMATE [Concomitant]
     Dates: start: 2013
  18. VISTARIL [Concomitant]
     Dates: start: 1999
  19. VYVANSE [Concomitant]
     Dates: start: 2013
  20. CHROMIUM PICOLINATE [Concomitant]
     Dates: start: 2013
  21. LORATADINE [Concomitant]
     Dates: start: 2013
  22. REFRESH EYE DROPS [Concomitant]
     Dates: start: 2013
  23. SYSTANE LUBRICATING EYE DROPS [Concomitant]
     Dates: start: 2013
  24. VITAFUSION [Concomitant]
     Dates: start: 2012
  25. VITAMIN D [Concomitant]
     Dates: start: 2011
  26. PROAIR HFA [Concomitant]
     Route: 055
     Dates: start: 1992
  27. FIORICET [Concomitant]
     Dates: start: 2003
  28. GABAPENTIN BULK POWDER OINTMENT [Concomitant]
     Dates: start: 2010
  29. LIDODERM PATCH [Concomitant]
     Route: 062
     Dates: start: 2010
  30. PROMETHAZINE [Concomitant]
     Dates: start: 2007
  31. TRAMADOL [Concomitant]
     Dates: start: 2009
  32. VICODIN [Concomitant]
     Dates: start: 2006
  33. BENADRYL [Concomitant]
     Dates: start: 1976
  34. COLACE [Concomitant]
     Dates: start: 2005
  35. ZANTAC [Concomitant]
     Dates: start: 1996
  36. DUONEB INHALATION [Concomitant]
     Dates: start: 1992

REACTIONS (3)
  - Off label use [Not Recovered/Not Resolved]
  - Stevens-Johnson syndrome [Recovering/Resolving]
  - Visual field tests abnormal [Unknown]
